FAERS Safety Report 5787293-3 (Version None)
Quarter: 2008Q2

REPORT INFORMATION
  Report Type: 
  Country: None (occurrence: None)
  Receive Date: 20080625
  Receipt Date: 20070910
  Transmission Date: 20081010
  Serious: No
  Sender: FDA-Public Use
  Company Number: US-ASTRAZENECA-2007UW21312

PATIENT
  Age: 55 Year
  Sex: Female
  Weight: 52.2 kg

DRUGS (2)
  1. PULMICORT-100 [Suspect]
     Indication: ASTHMA
     Route: 055
  2. THYROID TAB [Concomitant]

REACTIONS (3)
  - DRUG INEFFECTIVE [None]
  - HEADACHE [None]
  - NERVOUSNESS [None]
